FAERS Safety Report 14230117 (Version 1)
Quarter: 2017Q4

REPORT INFORMATION
  Report Type: Spontaneous
  Country: IN (occurrence: IN)
  Receive Date: 20171128
  Receipt Date: 20171128
  Transmission Date: 20180321
  Serious: Yes (Death)
  Sender: FDA-Public Use
  Company Number: IN-ENDO PHARMACEUTICALS INC-2017-007379

PATIENT
  Age: 4 Year
  Sex: Female

DRUGS (1)
  1. RHEUMATREX [Suspect]
     Active Substance: METHOTREXATE SODIUM
     Indication: STILL^S DISEASE
     Dosage: UNK UNK, UNKNOWN
     Route: 065

REACTIONS (1)
  - Histiocytosis haematophagic [Fatal]
